FAERS Safety Report 11087275 (Version 3)
Quarter: 2015Q2

REPORT INFORMATION
  Report Type: Report from Study
  Country: AU (occurrence: AU)
  Receive Date: 20150504
  Receipt Date: 20150626
  Transmission Date: 20150821
  Serious: Yes (Hospitalization)
  Sender: FDA-Public Use
  Company Number: AU-BIOGENIDEC-2015BI025700

PATIENT
  Age: 62 Year
  Sex: Female

DRUGS (3)
  1. TECFIDERA [Suspect]
     Active Substance: DIMETHYL FUMARATE
     Indication: MULTIPLE SCLEROSIS
     Route: 048
     Dates: start: 20150209, end: 20150215
  2. CLEXANE [Concomitant]
     Active Substance: ENOXAPARIN SODIUM
     Dates: end: 20150421
  3. TECFIDERA [Suspect]
     Active Substance: DIMETHYL FUMARATE
     Indication: MULTIPLE SCLEROSIS
     Route: 048
     Dates: start: 20150216

REACTIONS (8)
  - Frustration [Recovered/Resolved]
  - Swelling [Recovered/Resolved]
  - Balance disorder [Recovered/Resolved]
  - Flushing [Recovered/Resolved]
  - Hypoaesthesia oral [Recovered/Resolved]
  - Ankle fracture [Not Recovered/Not Resolved]
  - Fall [Recovered/Resolved]
  - Nausea [Recovered/Resolved]

NARRATIVE: CASE EVENT DATE: 2015
